FAERS Safety Report 5604395-2 (Version None)
Quarter: 2008Q1

REPORT INFORMATION
  Report Type: 
  Country: None (occurrence: None)
  Receive Date: 20080128
  Receipt Date: 20080118
  Transmission Date: 20080703
  Serious: Yes (Hospitalization)
  Sender: FDA-Public Use
  Company Number: SE-JNJFOC-20080105044

PATIENT
  Age: 63 Year
  Sex: Female

DRUGS (5)
  1. REMICADE [Suspect]
     Indication: RHEUMATOID ARTHRITIS
     Route: 042
  2. METHOTREXATE [Concomitant]
     Indication: RHEUMATOID ARTHRITIS
  3. FOLACIN [Concomitant]
  4. SOMADRIL [Concomitant]
  5. PREDNISOLONE [Concomitant]

REACTIONS (3)
  - NON-HODGKIN'S LYMPHOMA [None]
  - PERICARDITIS [None]
  - PLEURISY [None]
